FAERS Safety Report 5670372-9 (Version None)
Quarter: 2008Q2

REPORT INFORMATION
  Report Type: 
  Country: None (occurrence: None)
  Receive Date: 20080305
  Receipt Date: 20070302
  Transmission Date: 20081010
  Serious: Yes (Life-Threatening)
  Sender: FDA-Public Use
  Company Number: BDI-009173

PATIENT
  Age: 70 Year
  Sex: Male
  Weight: 115 kg

DRUGS (9)
  1. ISOVUE-370 [Suspect]
     Indication: ARTERIOGRAM CORONARY
     Dosage: ONCE INTRACARDIAC
     Route: 016
     Dates: start: 20070222, end: 20070222
  2. ISOVUE-370 [Suspect]
     Indication: CARDIAC STRESS TEST ABNORMAL
     Dosage: ONCE INTRACARDIAC
     Route: 016
     Dates: start: 20070222, end: 20070222
  3. HYDROCODONE [Concomitant]
  4. LISINOPRIL AND HYDROCHLOROTHIAZIDE [Concomitant]
  5. KETOPROFEN [Concomitant]
  6. ASPIRIN [Concomitant]
  7. OMEGA 3 [Concomitant]
  8. NIACIN [Concomitant]
  9. OXYBUTYNIN CHLORIDE [Concomitant]

REACTIONS (2)
  - ATRIOVENTRICULAR BLOCK [None]
  - CARDIAC ARREST [None]
